FAERS Safety Report 15112472 (Version 3)
Quarter: 2019Q3

REPORT INFORMATION
  Report Type: Spontaneous
  Country: US (occurrence: US)
  Receive Date: 20180705
  Receipt Date: 20190708
  Transmission Date: 20191004
  Serious: Yes (Other)
  Sender: FDA-Public Use
  Company Number: US-PFIZER INC-2015118953

PATIENT
  Age: 75 Year
  Sex: Male

DRUGS (1)
  1. BENEFIX [Suspect]
     Active Substance: COAGULATION FACTOR IX RECOMBINANT HUMAN\ISOPROPYL ALCOHOL
     Indication: HAEMORRHAGE
     Dosage: 4000 UNITS +- 10% INFUSE TWICE WEEKLY AND AS NEEDED (PRN), DISPENSE 10 DOSES

REACTIONS (5)
  - Haemorrhage [Unknown]
  - Haemarthrosis [Unknown]
  - Drug ineffective [Unknown]
  - HIV infection [Unknown]
  - Tremor [Unknown]
